FAERS Safety Report 6708852-7 (Version None)
Quarter: 2010Q2

REPORT INFORMATION
  Report Type: 
  Country: None (occurrence: None)
  Receive Date: 20100503
  Receipt Date: 20100503
  Transmission Date: 20101027
  Serious: No
  Sender: FDA-Public Use
  Company Number: None

PATIENT
  Sex: Female

DRUGS (1)
  1. BEVACIZUBAB 125 MG [Suspect]
     Indication: MACULAR DEGENERATION
     Dosage: 0.05 ML (1.25MG) ONCE A MONTH INTRAVITREAL
     Dates: start: 20100416

REACTIONS (1)
  - UVEITIS [None]
